FAERS Safety Report 5163627-8 (Version None)
Quarter: 2006Q4

REPORT INFORMATION
  Report Type: 
  Country: None (occurrence: None)
  Receive Date: 20061124
  Receipt Date: 20061113
  Transmission Date: 20070319
  Serious: Yes (Other)
  Sender: FDA-Public Use
  Company Number: 2006142067

PATIENT
  Age: 21 Year
  Sex: Male
  Weight: 57.1 kg

DRUGS (3)
  1. LYRICA [Suspect]
     Indication: CONVULSION
     Dosage: (50  MG)
     Dates: start: 20061006, end: 20061001
  2. CARBATROL [Concomitant]
  3. ZONEGRAN [Concomitant]

REACTIONS (3)
  - GRAND MAL CONVULSION [None]
  - THERAPY CESSATION [None]
  - URINARY INCONTINENCE [None]
